FAERS Safety Report 4314664-4 (Version None)
Quarter: 2004Q1

REPORT INFORMATION
  Report Type: 
  Country: None (occurrence: None)
  Receive Date: 20040308
  Receipt Date: 20040224
  Transmission Date: 20041129
  Serious: Yes (Hospitalization)
  Sender: FDA-Public Use
  Company Number: 2004009158

PATIENT
  Age: 31 Year
  Sex: Female
  Weight: 55 kg

DRUGS (2)
  1. ZITHROMAX [Suspect]
     Indication: INFECTION
     Dosage: 500 MG (DAILY), ORAL
     Route: 048
     Dates: start: 20040122, end: 20040122
  2. CEFTRIAXONE [Suspect]
     Indication: INFECTION
     Dosage: 2 GRAM (DAILY), INTRAVENOUS
     Route: 042
     Dates: start: 20040120, end: 20040122

REACTIONS (4)
  - CONDITION AGGRAVATED [None]
  - DRUG INEFFECTIVE [None]
  - IMPETIGO HERPETIFORMIS [None]
  - PYREXIA [None]
